FAERS Safety Report 9825636 (Version 3)
Quarter: 2014Q4

REPORT INFORMATION
  Report Type: Spontaneous
  Country: US (occurrence: US)
  Receive Date: 20140117
  Receipt Date: 20141201
  Transmission Date: 20150529
  Serious: Yes (Other)
  Sender: FDA-Public Use
  Company Number: US-BAYER-2014-007938

PATIENT
  Age: 36 Year
  Sex: Female
  Weight: 68.27 kg

DRUGS (2)
  1. MIRENA [Suspect]
     Active Substance: LEVONORGESTREL
     Indication: MENORRHAGIA
  2. MIRENA [Suspect]
     Active Substance: LEVONORGESTREL
     Indication: CONTRACEPTION
     Dosage: 20 MCG/24HR, CONT
     Route: 015
     Dates: start: 200809, end: 20100521

REACTIONS (3)
  - Ovarian cyst [None]
  - Injury [None]
  - Pain [None]

NARRATIVE: CASE EVENT DATE: 2010
